FAERS Safety Report 6272091-7 (Version None)
Quarter: 2009Q3

REPORT INFORMATION
  Report Type: 
  Country: None (occurrence: None)
  Receive Date: 20090715
  Receipt Date: 20090707
  Transmission Date: 20100115
  Serious: Yes (Disabling)
  Sender: FDA-Public Use
  Company Number: ALL1-2009-01520

PATIENT
  Age: 16 Year
  Sex: Male

DRUGS (3)
  1. VYVANSE [Suspect]
     Indication: ATTENTION DEFICIT/HYPERACTIVITY DISORDER
     Dosage: 30 MG, 1X/DAY:QD, ORAL; 15 TO 20 CAPSULES OF 30 MG, ORAL
     Route: 048
     Dates: start: 20090426
  2. VYVANSE [Suspect]
     Indication: ATTENTION DEFICIT/HYPERACTIVITY DISORDER
     Dosage: 30 MG, 1X/DAY:QD, ORAL; 15 TO 20 CAPSULES OF 30 MG, ORAL
     Route: 048
     Dates: start: 20090429
  3. ZOLOFT [Concomitant]

REACTIONS (5)
  - DRUG ABUSE [None]
  - FEELING ABNORMAL [None]
  - HEART RATE INCREASED [None]
  - INTENTIONAL OVERDOSE [None]
  - OFF LABEL USE [None]
